FAERS Safety Report 19271475 (Version 13)
Quarter: 2022Q1

REPORT INFORMATION
  Report Type: Report from Study
  Country: JP (occurrence: JP)
  Receive Date: 20210518
  Receipt Date: 20220119
  Transmission Date: 20220423
  Serious: Yes (Hospitalization, Other)
  Sender: FDA-Public Use
  Company Number: JP-BRISTOL-MYERS SQUIBB COMPANY-BMS-2021-042469

PATIENT
  Age: 63 Year
  Sex: Female
  Weight: 46.8 kg

DRUGS (17)
  1. NIVOLUMAB [Suspect]
     Active Substance: NIVOLUMAB
     Indication: Pancreatic carcinoma
     Dosage: 480 MILLIGRAM, Q4WK
     Route: 041
     Dates: start: 20210126, end: 20210917
  2. NIVOLUMAB [Suspect]
     Active Substance: NIVOLUMAB
     Dosage: 480 MILLIGRAM, Q4WK
     Route: 041
     Dates: start: 20211119
  3. NIVOLUMAB [Suspect]
     Active Substance: NIVOLUMAB
     Dosage: 480 MILLIGRAM
     Route: 041
     Dates: start: 20211217
  4. GIMERACIL\OTERACIL\TEGAFUR [Suspect]
     Active Substance: GIMERACIL\OTERACIL\TEGAFUR
     Indication: Pancreatic carcinoma
     Dosage: UNK
     Route: 065
     Dates: start: 20210126, end: 20210310
  5. MIROGABALIN BESYLATE [Concomitant]
     Active Substance: MIROGABALIN BESYLATE
     Indication: Spondylolisthesis
     Dosage: 15 MILLIGRAM, Q12H
     Route: 048
  6. REBAMIPIDE [Concomitant]
     Active Substance: REBAMIPIDE
     Indication: Gastritis prophylaxis
     Dosage: 100 MILLIGRAM, Q12H
     Route: 048
  7. CALONAL [Concomitant]
     Active Substance: ACETAMINOPHEN
     Indication: Cancer pain
     Dosage: 600 MILLIGRAM, Q6H
     Route: 048
  8. LOXOPROFEN SODIUM [Concomitant]
     Active Substance: LOXOPROFEN SODIUM
     Indication: Cancer pain
     Dosage: 60 MILLIGRAM, Q8H
     Route: 048
     Dates: end: 20210428
  9. TRAMADOL [Concomitant]
     Active Substance: TRAMADOL
     Indication: Cancer pain
     Dosage: 25 MG, 2-3 TIMES/DAY
     Route: 048
  10. OXYCODONE [Concomitant]
     Active Substance: OXYCODONE
     Indication: Cancer pain
     Dosage: 10 MILLIGRAM, Q12H
     Route: 048
     Dates: start: 20210205
  11. MAGNESIUM OXIDE [Concomitant]
     Active Substance: MAGNESIUM OXIDE
     Indication: Constipation
     Dosage: 330 MILLIGRAM, Q8H
     Route: 048
     Dates: start: 20210126
  12. SENNOSIDES A AND B [Concomitant]
     Active Substance: SENNOSIDES A AND B
     Indication: Constipation
     Dosage: 12 MILLIGRAM, PRN
     Route: 048
     Dates: start: 20210205
  13. GLYCERIN [Concomitant]
     Active Substance: GLYCERIN
     Indication: Constipation
     Dosage: 60 MILLILITER, PRN
     Route: 054
     Dates: start: 20210205
  14. PANCRELIPASE [Concomitant]
     Active Substance: PANCRELIPASE
     Indication: Pancreatic enzyme replacement therapy
     Dosage: 600 MILLIGRAM, Q8H
     Route: 048
     Dates: start: 20210205
  15. AZULENE [Concomitant]
     Active Substance: AZULENE
     Indication: Dry mouth
     Dosage: APPROPRIATE
     Route: 002
     Dates: start: 20210217
  16. SALIVEHT [Concomitant]
     Indication: Dry mouth
     Dosage: APPROPRIATE
     Route: 002
     Dates: start: 20210217
  17. UREA [Concomitant]
     Active Substance: UREA
     Indication: Dry skin prophylaxis
     Dosage: APPROPRIATE
     Route: 061
     Dates: start: 20210226

REACTIONS (5)
  - Vomiting [Recovered/Resolved]
  - Decreased appetite [Recovered/Resolved]
  - Gastric ulcer [Recovered/Resolved]
  - Bile duct stenosis [Recovered/Resolved]
  - Biliary tract infection [Recovered/Resolved]

NARRATIVE: CASE EVENT DATE: 20210429
